FAERS Safety Report 4477101-5 (Version None)
Quarter: 2004Q4

REPORT INFORMATION
  Report Type: 
  Country: None (occurrence: None)
  Receive Date: 20041018
  Receipt Date: 20040913
  Transmission Date: 20050328
  Serious: Yes (Death, Hospitalization)
  Sender: FDA-Public Use
  Company Number: 200412908JP

PATIENT
  Age: 86 Year
  Sex: Male

DRUGS (7)
  1. TARGOCID [Suspect]
     Indication: PNEUMONIA
     Route: 041
     Dates: start: 20040816, end: 20040906
  2. LASIX [Suspect]
     Indication: CARDIAC FAILURE
     Route: 041
     Dates: start: 20040811, end: 20040816
  3. DALACIN-S [Suspect]
     Indication: PNEUMONIA
     Route: 041
     Dates: start: 20040716, end: 20040812
  4. CIPROXAN [Concomitant]
     Indication: PNEUMONIA
     Route: 041
     Dates: start: 20040819, end: 20040913
  5. FIRSTCIN [Concomitant]
     Indication: PNEUMONIA
     Route: 041
     Dates: start: 20040819, end: 20040830
  6. SELBEX [Concomitant]
     Indication: GASTRITIS
     Route: 048
     Dates: start: 20040301
  7. MUCODYNE [Concomitant]
     Indication: PNEUMONIA
     Route: 048
     Dates: start: 20040301

REACTIONS (7)
  - ALANINE AMINOTRANSFERASE INCREASED [None]
  - ASPARTATE AMINOTRANSFERASE INCREASED [None]
  - BILIRUBIN CONJUGATED INCREASED [None]
  - BLOOD ALKALINE PHOSPHATASE INCREASED [None]
  - BLOOD LACTATE DEHYDROGENASE INCREASED [None]
  - DRUG INEFFECTIVE [None]
  - LIVER DISORDER [None]
